FAERS Safety Report 19890603 (Version 1)
Quarter: 2021Q3

REPORT INFORMATION
  Report Type: Spontaneous
  Country: AU (occurrence: AU)
  Receive Date: 20210927
  Receipt Date: 20210927
  Transmission Date: 20211014
  Serious: Yes (Hospitalization, Other)
  Sender: FDA-Public Use
  Company Number: AU-ANIPHARMA-2021-AU-000277

PATIENT
  Age: 50 Year
  Sex: Male

DRUGS (2)
  1. CIPROFLOXACIN (NON?SPECIFIC) [Suspect]
     Active Substance: CIPROFLOXACIN
     Indication: PROSTATITIS
  2. TAMSULOSIN [Concomitant]
     Active Substance: TAMSULOSIN

REACTIONS (3)
  - Drug reaction with eosinophilia and systemic symptoms [Recovered/Resolved]
  - Eosinophilic myocarditis [Recovered/Resolved]
  - Thyroiditis [Recovered/Resolved]
